FAERS Safety Report 17463395 (Version 1)
Quarter: 2020Q1

REPORT INFORMATION
  Report Type: Spontaneous
  Country: GB (occurrence: GB)
  Receive Date: 20200226
  Receipt Date: 20200226
  Transmission Date: 20200409
  Serious: Yes (Hospitalization)
  Sender: FDA-Public Use
  Company Number: GB-TEVA-2020-GB-1191666

PATIENT
  Age: 91 Year
  Sex: Female

DRUGS (5)
  1. SPIRONOLACTONE. [Concomitant]
     Active Substance: SPIRONOLACTONE
     Dosage: HELD
  2. RAMIPRIL. [Concomitant]
     Active Substance: RAMIPRIL
  3. FUROSEMIDE. [Concomitant]
     Active Substance: FUROSEMIDE
  4. TRIMETHOPRIM. [Suspect]
     Active Substance: TRIMETHOPRIM
     Indication: URINARY TRACT INFECTION
     Dosage: 400 MG
     Route: 048
     Dates: start: 20200120, end: 20200127
  5. CARVEDILOL. [Concomitant]
     Active Substance: CARVEDILOL

REACTIONS (1)
  - Acute kidney injury [Recovering/Resolving]
